FAERS Safety Report 5268728-1 (Version None)
Quarter: 2007Q1

REPORT INFORMATION
  Report Type: 
  Country: None (occurrence: None)
  Receive Date: 20070319
  Receipt Date: 20070313
  Transmission Date: 20070707
  Serious: Yes (Hospitalization)
  Sender: FDA-Public Use
  Company Number: FR-MERCK-0611FRA00068

PATIENT
  Age: 80 Year
  Sex: Female
  Weight: 64 kg

DRUGS (12)
  1. NITROGLYCERIN [Concomitant]
     Route: 061
  2. CETIRIZINE HYDROCHLORIDE [Concomitant]
     Route: 048
  3. ZOLPIDEM TARTRATE [Concomitant]
     Route: 048
  4. BUDESONIDE [Concomitant]
  5. FERROUS SULFATE [Concomitant]
     Indication: ANAEMIA
     Route: 048
  6. FOSAMAX PLUS D [Suspect]
     Indication: OSTEOPOROSIS
     Route: 048
     Dates: start: 20060215, end: 20061013
  7. ENALAPRIL MALEATE [Suspect]
     Indication: HYPERTENSION
     Route: 048
     Dates: end: 20061013
  8. RABEPRAZOLE SODIUM [Suspect]
     Route: 048
     Dates: end: 20061013
  9. FENOFIBRATE [Concomitant]
     Indication: DYSLIPIDAEMIA
     Route: 048
     Dates: end: 20061013
  10. FLUINDIONE [Concomitant]
     Indication: PROPHYLAXIS
     Route: 048
     Dates: end: 20061013
  11. VERAPAMIL HYDROCHLORIDE [Concomitant]
     Indication: CARDIOMYOPATHY
     Route: 048
  12. LEVOTHYROXINE SODIUM [Concomitant]
     Indication: HYPOTHYROIDISM
     Route: 048

REACTIONS (1)
  - TUBULOINTERSTITIAL NEPHRITIS [None]
